FAERS Safety Report 4357473-2 (Version None)
Quarter: 2004Q2

REPORT INFORMATION
  Report Type: 
  Country: None (occurrence: None)
  Receive Date: 20040511
  Receipt Date: 20040511
  Transmission Date: 20050107
  Serious: Yes (Hospitalization)
  Sender: FDA-Public Use
  Company Number: None

PATIENT
  Age: 68 Year
  Sex: Female
  Weight: 66.7 kg

DRUGS (10)
  1. PRINIVIL [Suspect]
     Indication: HYPERTENSION
     Dosage: 20 MG BID
  2. LOSARTAN POTASSIUM [Suspect]
     Indication: HYPERTENSION
     Dosage: 25 MG BID
  3. DIGOXIN [Concomitant]
  4. LASIX [Concomitant]
  5. FLOVENT [Concomitant]
  6. ALBUTEROL [Concomitant]
  7. FOSAMAX [Concomitant]
  8. CLONIDINE HCL [Concomitant]
  9. CELEXA [Concomitant]
  10. ZOCOR [Concomitant]

REACTIONS (2)
  - OEDEMA MOUTH [None]
  - SWOLLEN TONGUE [None]
